FAERS Safety Report 8813046 (Version 2)
Quarter: 2012Q4

REPORT INFORMATION
  Report Type: 
  Country: US (occurrence: US)
  Receive Date: 20120927
  Receipt Date: 20121106
  Transmission Date: 20130627
  Serious: Yes (Death)
  Sender: FDA-Public Use
  Company Number: US-ROCHE-1129662

PATIENT
  Sex: Female

DRUGS (1)
  1. HERCEPTIN [Suspect]
     Indication: BREAST CANCER FEMALE
     Dosage: loading dose
     Route: 065
     Dates: start: 20010928, end: 200111

REACTIONS (2)
  - Breast cancer recurrent [Fatal]
  - Pulmonary embolism [Fatal]
